FAERS Safety Report 20481394 (Version 2)
Quarter: 2022Q2

REPORT INFORMATION
  Report Type: Spontaneous
  Country: SK (occurrence: SK)
  Receive Date: 20220216
  Receipt Date: 20220414
  Transmission Date: 20220721
  Serious: Yes (Other)
  Sender: FDA-Public Use
  Company Number: SK-VERTEX PHARMACEUTICALS-2021-018905

PATIENT
  Sex: Female

DRUGS (9)
  1. ELEXACAFTOR\IVACAFTOR\TEZACAFTOR [Suspect]
     Active Substance: ELEXACAFTOR\IVACAFTOR\TEZACAFTOR
     Indication: Cystic fibrosis
     Dosage: 2 TABS IN AM
     Route: 048
     Dates: start: 20210519, end: 202111
  2. ELEXACAFTOR\IVACAFTOR\TEZACAFTOR [Suspect]
     Active Substance: ELEXACAFTOR\IVACAFTOR\TEZACAFTOR
     Dosage: 2 TABS TWICE A WEEK
     Route: 048
     Dates: start: 202111, end: 2021
  3. ELEXACAFTOR\IVACAFTOR\TEZACAFTOR [Suspect]
     Active Substance: ELEXACAFTOR\IVACAFTOR\TEZACAFTOR
     Dosage: 2 TABS AM
     Route: 048
  4. KALYDECO [Suspect]
     Active Substance: IVACAFTOR
     Indication: Cystic fibrosis
     Dosage: 1 TAB IN PM
     Route: 048
     Dates: start: 20210519
  5. ITRACONAZOLE [Suspect]
     Active Substance: ITRACONAZOLE
     Indication: Infective pulmonary exacerbation of cystic fibrosis
     Dosage: 200 MG EVERY 12 HOURS
     Route: 065
     Dates: start: 20211102, end: 20211122
  6. INSULIN NOS [Concomitant]
     Active Substance: INSULIN NOS
  7. CEFOPERAZONE SODIUM\SULBACTAM [Concomitant]
     Active Substance: CEFOPERAZONE SODIUM\SULBACTAM
     Indication: Infective pulmonary exacerbation of cystic fibrosis
     Dosage: 2 GRAM; EVERY 8 HOURS
     Route: 042
     Dates: start: 20211102, end: 20211115
  8. COLISTIN SULFATE [Concomitant]
     Active Substance: COLISTIN SULFATE
     Indication: Infective pulmonary exacerbation of cystic fibrosis
     Dosage: 2 MILLION IU EVERY 8 HOURS
     Route: 042
     Dates: start: 20211102, end: 20211122
  9. TOBRAMYCIN [Concomitant]
     Active Substance: TOBRAMYCIN
     Indication: Infective pulmonary exacerbation of cystic fibrosis
     Dosage: 240 MG; EVERY 24 HOURS
     Route: 042
     Dates: start: 20211105, end: 20211115

REACTIONS (2)
  - Abortion induced [Unknown]
  - Exposure during pregnancy [Unknown]

NARRATIVE: CASE EVENT DATE: 20210101
